FAERS Safety Report 5116681-3 (Version None)
Quarter: 2006Q3

REPORT INFORMATION
  Report Type: 
  Country: None (occurrence: None)
  Receive Date: 20060928
  Receipt Date: 20051223
  Transmission Date: 20061208
  Serious: Yes (Hospitalization)
  Sender: FDA-Public Use
  Company Number: US-ROCHE-430194

PATIENT
  Age: 48 Year
  Sex: Male

DRUGS (8)
  1. FUZEON [Suspect]
     Dosage: ROUTE OF ADMINISTRATION REPORTED AS INJECTION.
     Route: 050
     Dates: start: 20050615, end: 20050915
  2. FUZEON [Suspect]
     Route: 050
     Dates: start: 20051215, end: 20051224
  3. FUZEON [Suspect]
     Route: 050
     Dates: end: 20051231
  4. FUZEON [Suspect]
     Dosage: ROUTE REPORTED AS INJECTABLE.
     Route: 050
     Dates: start: 20060104
  5. APTIVUS [Concomitant]
     Route: 065
     Dates: start: 20050615
  6. NORVIR [Concomitant]
     Route: 065
     Dates: start: 20050615
  7. COMBIVIR [Concomitant]
     Route: 065
     Dates: start: 20040615
  8. VIREAD [Concomitant]
     Route: 065
     Dates: start: 20040615

REACTIONS (7)
  - ANAEMIA [None]
  - COUGH [None]
  - INJECTION SITE PAIN [None]
  - MALAISE [None]
  - PYREXIA [None]
  - SKIN HYPERTROPHY [None]
  - WEIGHT DECREASED [None]
